FAERS Safety Report 11092621 (Version 1)
Quarter: 2015Q2

REPORT INFORMATION
  Report Type: Spontaneous
  Country: US (occurrence: None)
  Receive Date: 20150505
  Receipt Date: 20150505
  Transmission Date: 20150821
  Serious: Yes (Life-Threatening, Hospitalization)
  Sender: FDA-Public Use
  Company Number: None

PATIENT
  Age: 7 Year
  Sex: Female
  Weight: 20.41 kg

DRUGS (1)
  1. CHILDRENS IBUPROFEN [Suspect]
     Active Substance: IBUPROFEN
     Indication: POSTOPERATIVE ANALGESIA
     Dosage: 7.5 ML LIQUID, THREE TIMES DAILY, TAKEN BY MOUTH
     Route: 048
     Dates: start: 20141229, end: 20150104

REACTIONS (3)
  - Anaphylactic reaction [None]
  - Product use issue [None]
  - Faecal incontinence [None]

NARRATIVE: CASE EVENT DATE: 20150104
